FAERS Safety Report 5579163-0 (Version None)
Quarter: 2007Q4

REPORT INFORMATION
  Report Type: 
  Country: None (occurrence: None)
  Receive Date: 20071227
  Receipt Date: 20071227
  Transmission Date: 20080405
  Serious: Yes (Life-Threatening)
  Sender: FDA-Public Use
  Company Number: None

PATIENT
  Age: 64 Year
  Sex: Female
  Weight: 68.0396 kg

DRUGS (2)
  1. CHANTIX [Suspect]
     Indication: SMOKING CESSATION THERAPY
     Dosage: AS PERSCRIBED AS PERSCRIBED PO
     Route: 048
     Dates: start: 20070312, end: 20070430
  2. CHANTIX [Suspect]
     Indication: SMOKING CESSATION THERAPY
     Dosage: AS PERSCRIBED AS PERSCRIBED PO
     Route: 048
     Dates: start: 20070601, end: 20070713

REACTIONS (7)
  - ABNORMAL BEHAVIOUR [None]
  - ANXIETY [None]
  - DEPRESSION [None]
  - IRRITABILITY [None]
  - MOOD SWINGS [None]
  - SUICIDAL IDEATION [None]
  - SUICIDE ATTEMPT [None]
